FAERS Safety Report 14927137 (Version 1)
Quarter: 2018Q2

REPORT INFORMATION
  Report Type: Report from Study
  Country: None (occurrence: US)
  Receive Date: 20180523
  Receipt Date: 20180523
  Transmission Date: 20180711
  Serious: Yes (Other)
  Sender: FDA-Public Use
  Company Number: US-ABBVIE-18K-163-2238873-00

PATIENT
  Age: 71 Year
  Sex: Female
  Weight: 74 kg

DRUGS (11)
  1. HUMIRA [Suspect]
     Active Substance: ADALIMUMAB
     Route: 058
     Dates: start: 2018
  2. POTASSIUM SUPPLEMENT [Concomitant]
     Active Substance: POTASSIUM
     Indication: MINERAL SUPPLEMENTATION
  3. HUMIRA [Suspect]
     Active Substance: ADALIMUMAB
     Indication: RHEUMATOID ARTHRITIS
     Route: 058
     Dates: start: 201606, end: 201801
  4. HYDROXYCHLOROQUINE [Concomitant]
     Active Substance: HYDROXYCHLOROQUINE
     Indication: RHEUMATOID ARTHRITIS
  5. FOLIC ACID. [Concomitant]
     Active Substance: FOLIC ACID
     Indication: DRUG THERAPY ENHANCEMENT
  6. ALLOPURINOL. [Concomitant]
     Active Substance: ALLOPURINOL
     Indication: RHEUMATOID ARTHRITIS
  7. METHOTREXATE. [Concomitant]
     Active Substance: METHOTREXATE
     Indication: RHEUMATOID ARTHRITIS
  8. CRESTOR [Concomitant]
     Active Substance: ROSUVASTATIN CALCIUM
     Indication: BLOOD CHOLESTEROL INCREASED
  9. HYDROCHLOROTHIAZIDE. [Concomitant]
     Active Substance: HYDROCHLOROTHIAZIDE
     Indication: HYPERTENSION
  10. ESTRACE [Concomitant]
     Active Substance: ESTRADIOL
     Indication: HORMONE THERAPY
  11. LISINOPRIL. [Concomitant]
     Active Substance: LISINOPRIL
     Indication: HYPERTENSION

REACTIONS (9)
  - Ear haemorrhage [Unknown]
  - Influenza [Unknown]
  - Cataract [Recovered/Resolved]
  - Musculoskeletal discomfort [Unknown]
  - Fungal skin infection [Unknown]
  - Rheumatoid arthritis [Unknown]
  - Drug effect delayed [Unknown]
  - Bladder prolapse [Not Recovered/Not Resolved]
  - Joint stiffness [Unknown]

NARRATIVE: CASE EVENT DATE: 201710
